FAERS Safety Report 4303934-1 (Version None)
Quarter: 2004Q1

REPORT INFORMATION
  Report Type: 
  Country: None (occurrence: None)
  Receive Date: 20040223
  Receipt Date: 20031124
  Transmission Date: 20041129
  Serious: No
  Sender: FDA-Public Use
  Company Number: PHEH2003US10848

PATIENT
  Age: 67 Year
  Sex: Female

DRUGS (3)
  1. ZELNORM [Suspect]
     Indication: ABDOMINAL DISTENSION
     Dosage: 6 MG, BID
     Dates: start: 20031120, end: 20031123
  2. HYDROCHLOROTHIAZIDE [Concomitant]
  3. MICARDIS [Concomitant]

REACTIONS (5)
  - BLOOD PRESSURE DECREASED [None]
  - DIARRHOEA [None]
  - DRY THROAT [None]
  - DYSPHAGIA [None]
  - THROAT TIGHTNESS [None]
